FAERS Safety Report 5671373-7 (Version None)
Quarter: 2008Q1

REPORT INFORMATION
  Report Type: 
  Country: None (occurrence: None)
  Receive Date: 20080313
  Receipt Date: 20070710
  Transmission Date: 20080703
  Serious: Yes (Other)
  Sender: FDA-Public Use
  Company Number: MK-6035723

PATIENT
  Age: 27 Year
  Sex: Male

DRUGS (2)
  1. RANITIDINE HYDROCHLORIDE [Suspect]
     Indication: DRUG USE FOR UNKNOWN INDICATION
     Dosage: DAILY; ORAL
     Route: 048
  2. CLOZAPINE [Suspect]
     Indication: DRUG USE FOR UNKNOWN INDICATION
     Dosage: 12.5 MG; DAILY; ORAL
     Route: 048

REACTIONS (5)
  - EOSINOPHIL COUNT INCREASED [None]
  - HYPOTENSION [None]
  - LYMPHOCYTE COUNT DECREASED [None]
  - MYOCARDITIS [None]
  - TACHYPNOEA [None]
